FAERS Safety Report 5462141-X (Version None)
Quarter: 2007Q3

REPORT INFORMATION
  Report Type: 
  Country: None (occurrence: None)
  Receive Date: 20070920
  Receipt Date: 20070508
  Transmission Date: 20080115
  Serious: No
  Sender: FDA-Public Use
  Company Number: A0650206A

PATIENT
  Age: 67 Year
  Sex: Female

DRUGS (1)
  1. ABREVA [Suspect]
     Dates: start: 20070401, end: 20070404

REACTIONS (4)
  - APPLICATION SITE BLEEDING [None]
  - APPLICATION SITE SCAB [None]
  - CHAPPED LIPS [None]
  - LIP PAIN [None]
